FAERS Safety Report 10640113 (Version 1)
Quarter: 2014Q4

REPORT INFORMATION
  Report Type: Spontaneous
  Country: US (occurrence: None)
  Receive Date: 20141205
  Receipt Date: 20141205
  Transmission Date: 20150529
  Serious: No
  Sender: FDA-Public Use
  Company Number: None

PATIENT
  Sex: Female

DRUGS (1)
  1. PROLIA [Suspect]
     Active Substance: DENOSUMAB

REACTIONS (15)
  - Chills [None]
  - Skin haemorrhage [None]
  - Insomnia [None]
  - Scab [None]
  - Vitreous floaters [None]
  - Urinary tract infection [None]
  - Inflammation [None]
  - Gingival pain [None]
  - Product quality issue [None]
  - Otorrhoea [None]
  - Hypersensitivity [None]
  - Urticaria [None]
  - Disturbance in attention [None]
  - Swelling face [None]
  - Pruritus [None]

NARRATIVE: CASE EVENT DATE: 201209
